FAERS Safety Report 5147797-3 (Version None)
Quarter: 2006Q4

REPORT INFORMATION
  Report Type: 
  Country: None (occurrence: None)
  Receive Date: 20061110
  Receipt Date: 20061102
  Transmission Date: 20070319
  Serious: Yes (Other)
  Sender: FDA-Public Use
  Company Number: US-JNJFOC-20061005185

PATIENT
  Age: 68 Year
  Sex: Male
  Weight: 74.5 kg

DRUGS (9)
  1. REOPRO [Suspect]
     Dosage: 8 MG/250 ML (139 ML/HR)
     Route: 042
  2. REOPRO [Suspect]
     Indication: ANGIOPLASTY
     Route: 042
  3. CLOPIDOGREL [Concomitant]
  4. OMEPRAZOLE [Concomitant]
  5. ASPIRIN [Concomitant]
  6. METOPROLOL TARTRATE [Concomitant]
  7. ISOSORBIDE MONONITRATE [Concomitant]
  8. SIMVASTATIN [Concomitant]
  9. FELODIPINE [Concomitant]

REACTIONS (2)
  - ACCIDENTAL OVERDOSE [None]
  - HAEMATOMA [None]
